FAERS Safety Report 13695509 (Version 2)
Quarter: 2017Q3

REPORT INFORMATION
  Report Type: Spontaneous
  Country: GR (occurrence: GR)
  Receive Date: 20170627
  Receipt Date: 20170725
  Transmission Date: 20171127
  Serious: Yes (Hospitalization)
  Sender: FDA-Public Use
  Company Number: GR-PFIZER INC-2017276532

PATIENT
  Age: 62 Year
  Sex: Male

DRUGS (1)
  1. ARACYTIN [Suspect]
     Active Substance: CYTARABINE
     Indication: B-CELL LYMPHOMA
     Dosage: UNK

REACTIONS (1)
  - Extravasation [Unknown]
